FAERS Safety Report 13064298 (Version 1)
Quarter: 2016Q4

REPORT INFORMATION
  Report Type: Spontaneous
  Country: JP (occurrence: JP)
  Receive Date: 20161227
  Receipt Date: 20161227
  Transmission Date: 20170207
  Serious: Yes (Other)
  Sender: FDA-Public Use
  Company Number: JP-BRISTOL-MYERS SQUIBB COMPANY-BMS-2016-108844

PATIENT
  Age: 57 Year
  Sex: Male
  Weight: 75 kg

DRUGS (9)
  1. 5-FLUOROURACIL                     /00098801/ [Suspect]
     Active Substance: FLUOROURACIL
     Indication: PRODUCT USED FOR UNKNOWN INDICATION
     Dosage: 2400 MG/M2, Q2WK
     Route: 042
  2. WARFARIN SODIUM. [Suspect]
     Active Substance: WARFARIN SODIUM
     Indication: PULMONARY EMBOLISM
     Dosage: UNK
     Route: 065
  3. OXALIPLATIN. [Concomitant]
     Active Substance: OXALIPLATIN
     Indication: METASTASES TO LIVER
     Dosage: 85 MG/M2, UNK
     Route: 065
  4. APREPITANT. [Suspect]
     Active Substance: APREPITANT
     Indication: METASTASES TO LIVER
     Dosage: 125 MG, QD
     Route: 065
  5. APREPITANT. [Suspect]
     Active Substance: APREPITANT
     Indication: PRODUCT USED FOR UNKNOWN INDICATION
     Dosage: 80 MG, QD
     Route: 065
  6. 5-FLUOROURACIL                     /00098801/ [Suspect]
     Active Substance: FLUOROURACIL
     Indication: METASTASES TO LIVER
     Dosage: 400 MG/M2, DAY 1
     Route: 065
  7. LEUCOVORIN                         /00566701/ [Concomitant]
     Active Substance: LEUCOVORIN
     Indication: METASTASES TO LIVER
     Dosage: 400 MG/M2, UNK
     Route: 065
  8. WARFARIN SODIUM. [Suspect]
     Active Substance: WARFARIN SODIUM
     Indication: DEEP VEIN THROMBOSIS
     Route: 065
  9. PANITUMUMAB [Concomitant]
     Active Substance: PANITUMUMAB
     Indication: METASTASES TO LIVER
     Dosage: 6 MG/KG, Q2WK
     Route: 065

REACTIONS (3)
  - Prothrombin time ratio abnormal [Unknown]
  - Pulmonary embolism [Unknown]
  - Labelled drug-drug interaction medication error [Unknown]
